FAERS Safety Report 9684004 (Version 2)
Quarter: 2013Q4

REPORT INFORMATION
  Report Type: Report from Study
  Country: CA (occurrence: CA)
  Receive Date: 20131112
  Receipt Date: 20131112
  Transmission Date: 20140711
  Serious: Yes (Death)
  Sender: FDA-Public Use
  Company Number: PHHY2013CA078015

PATIENT
  Age: 54 Year
  Sex: Female

DRUGS (8)
  1. EXJADE [Suspect]
     Indication: ACUTE MYELOID LEUKAEMIA
     Dosage: 500 MG, QD
     Route: 048
     Dates: start: 20130715
  2. EXJADE [Suspect]
     Dosage: 1000 MG, QD
     Route: 048
  3. VALTREX [Concomitant]
     Dosage: UNK UKN, UNK
  4. PENTALOC [Concomitant]
  5. ANTIHISTAMINICS [Concomitant]
  6. ATIVAN [Concomitant]
     Dosage: UNK UKN, UNK
  7. CALCIUM [Concomitant]
     Dosage: UNK UKN, UNK
  8. HORMONES [Concomitant]
     Dosage: UNK UKN, UNK

REACTIONS (10)
  - Death [Fatal]
  - Hepatic pain [Unknown]
  - Cough [Unknown]
  - Abdominal pain upper [Unknown]
  - Local swelling [Recovered/Resolved]
  - Headache [Recovered/Resolved]
  - Serum ferritin increased [Unknown]
  - Pyrexia [Unknown]
  - White blood cell count increased [Unknown]
  - Diarrhoea [Unknown]
